FAERS Safety Report 8185668-9 (Version None)
Quarter: 2012Q1

REPORT INFORMATION
  Report Type: 
  Country: None (occurrence: None)
  Receive Date: 20120305
  Receipt Date: 20120224
  Transmission Date: 20120608
  Serious: Yes (Other)
  Sender: FDA-Public Use
  Company Number: CHPA2012US004138

PATIENT
  Age: 57 Year
  Sex: Female

DRUGS (8)
  1. MORPHINE [Concomitant]
  2. VENTOLIN [Concomitant]
     Indication: ASTHMA
  3. VOLTAREN [Suspect]
     Indication: OSTEOARTHRITIS
     Dosage: 0.5 TSP, UNK
     Route: 061
     Dates: start: 20120213, end: 20120223
  4. GABAPENTIN [Concomitant]
  5. PREDNISONE TAB [Concomitant]
  6. NEURONTIN [Concomitant]
  7. DRUG THERAPY NOS [Concomitant]
  8. CETIRIZINE [Concomitant]
     Indication: HYPERSENSITIVITY

REACTIONS (5)
  - DRUG ADMINISTERED AT INAPPROPRIATE SITE [None]
  - GASTROINTESTINAL SURGERY [None]
  - INCORRECT DOSE ADMINISTERED [None]
  - GASTROOESOPHAGEAL REFLUX DISEASE [None]
  - FIBROMYALGIA [None]
